FAERS Safety Report 19071077 (Version 1)
Quarter: 2021Q1

REPORT INFORMATION
  Report Type: Report from Study
  Country: BR (occurrence: BR)
  Receive Date: 20210330
  Receipt Date: 20210330
  Transmission Date: 20210420
  Serious: Yes (Hospitalization)
  Sender: FDA-Public Use
  Company Number: BR-JNJFOC-20210346397

PATIENT
  Age: 14 Year
  Sex: Female
  Weight: 57 kg

DRUGS (2)
  1. BIO?MANGUINHOS INFLIXIMABE [Suspect]
     Active Substance: INFLIXIMAB
     Indication: CROHN^S DISEASE
     Route: 042
     Dates: start: 20201126
  2. BIO?MANGUINHOS INFLIXIMABE [Suspect]
     Active Substance: INFLIXIMAB
     Route: 042
     Dates: start: 20210127

REACTIONS (2)
  - Abdominal pain [Recovered/Resolved]
  - Asthenia [Recovered/Resolved]
